FAERS Safety Report 9207729 (Version 2)
Quarter: 2013Q2

REPORT INFORMATION
  Report Type: Spontaneous
  Country: US (occurrence: US)
  Receive Date: 20130403
  Receipt Date: 20130517
  Transmission Date: 20140414
  Serious: Yes (Other)
  Sender: FDA-Public Use
  Company Number: US-PFIZER INC-2013106262

PATIENT
  Age: 49 Year
  Sex: Male
  Weight: 65.76 kg

DRUGS (3)
  1. DILANTIN [Suspect]
     Indication: CONVULSION
     Dosage: 400 MG (4 CAPSULES OF 100MG), 1X/DAY (Q AM)
     Route: 048
  2. DEPAKOTE [Concomitant]
     Dosage: 500 MG, UNK
     Route: 048
  3. DEPAKOTE [Concomitant]
     Dosage: 1500 MG, 1X/DAY

REACTIONS (3)
  - Diplopia [Unknown]
  - Tremor [Unknown]
  - Vision blurred [Unknown]
